FAERS Safety Report 9228096 (Version 2)
Quarter: 2013Q2

REPORT INFORMATION
  Report Type: Report from Study
  Country: IT (occurrence: IT)
  Receive Date: 20130412
  Receipt Date: 20130522
  Transmission Date: 20140414
  Serious: Yes (Other)
  Sender: FDA-Public Use
  Company Number: IT-ROCHE-1208719

PATIENT
  Sex: 0

DRUGS (2)
  1. ALTEPLASE [Suspect]
     Indication: ISCHAEMIC STROKE
     Dosage: 90 MG MAXIMUM 10% AS BOLUS
     Route: 040
  2. HEPARIN [Concomitant]
     Dosage: 2000 U FOLLOWED BY INFUSION OF500 U/H UNTIL TERMINATION OF THE ANGIOGRAPHY
     Route: 042

REACTIONS (1)
  - Neurological decompensation [Unknown]
